FAERS Safety Report 8360651-9 (Version None)
Quarter: 2012Q2

REPORT INFORMATION
  Report Type: 
  Country: None (occurrence: None)
  Receive Date: 20120514
  Receipt Date: 20120514
  Transmission Date: 20120825
  Serious: Yes (Hospitalization)
  Sender: FDA-Public Use
  Company Number: None

PATIENT
  Sex: Male
  Weight: 0.8437 kg

DRUGS (7)
  1. ASPIRIN [Concomitant]
  2. ACTOS [Concomitant]
  3. INDOMETHACIN [Concomitant]
  4. VYTORIN [Concomitant]
  5. BEVACIZUMAB [Suspect]
     Indication: HEPATIC NEOPLASM MALIGNANT
     Dosage: 813MG DAY 1, DAY 8 IV
     Route: 042
     Dates: start: 20110809, end: 20120321
  6. FISH OIL [Concomitant]
  7. ERLOTINIB HYDROCHLORIDE [Suspect]
     Indication: HEPATIC NEOPLASM MALIGNANT
     Dosage: 100 MG QD PO
     Route: 048
     Dates: start: 20110809, end: 20120401

REACTIONS (2)
  - FATIGUE [None]
  - ATRIAL FIBRILLATION [None]
